FAERS Safety Report 17103606 (Version 1)
Quarter: 2019Q4

REPORT INFORMATION
  Report Type: Spontaneous
  Country: JP (occurrence: JP)
  Receive Date: 20191203
  Receipt Date: 20191203
  Transmission Date: 20200122
  Serious: Yes (Other)
  Sender: FDA-Public Use
  Company Number: JP-ROCHE-2488322

PATIENT
  Age: 69 Year
  Sex: Male

DRUGS (14)
  1. LUCENTIS [Suspect]
     Active Substance: RANIBIZUMAB
     Dosage: 0.5 MG,RIGHT EYE
     Route: 031
  2. LUCENTIS [Suspect]
     Active Substance: RANIBIZUMAB
     Dosage: 0.5 MG,RIGHT EYE
     Route: 031
     Dates: end: 201805
  3. LUCENTIS [Suspect]
     Active Substance: RANIBIZUMAB
     Dosage: 0.5 MG,RIGHT EYE
     Route: 031
  4. LUCENTIS [Suspect]
     Active Substance: RANIBIZUMAB
     Dosage: 0.5 MG,RIGHT EYE
     Route: 031
  5. LUCENTIS [Suspect]
     Active Substance: RANIBIZUMAB
     Dosage: 0.5 MG,RIGHT EYE
     Route: 031
  6. LUCENTIS [Suspect]
     Active Substance: RANIBIZUMAB
     Dosage: 0.5 MG,LEFT EYE
     Route: 031
  7. LUCENTIS [Suspect]
     Active Substance: RANIBIZUMAB
     Indication: DIABETIC RETINAL OEDEMA
     Dosage: 0.5 MG,RIGHT EYE
     Route: 031
     Dates: start: 20161014
  8. LUCENTIS [Suspect]
     Active Substance: RANIBIZUMAB
     Dosage: 0.5 MG,RIGHT EYE
     Route: 031
  9. LUCENTIS [Suspect]
     Active Substance: RANIBIZUMAB
     Dosage: 0.5 MG, LEFT EYE
     Route: 031
     Dates: start: 20170331
  10. LUCENTIS [Suspect]
     Active Substance: RANIBIZUMAB
     Dosage: 0.5 MG,RIGHT EYE
     Route: 031
  11. LUCENTIS [Suspect]
     Active Substance: RANIBIZUMAB
     Dosage: 0.5 MG,LEFT EYE
     Route: 031
  12. LUCENTIS [Suspect]
     Active Substance: RANIBIZUMAB
     Dosage: 0.5 MG,LEFT EYE
     Route: 031
     Dates: end: 201805
  13. LUCENTIS [Suspect]
     Active Substance: RANIBIZUMAB
     Dosage: 0.5 MG,LEFT EYE
     Route: 031
  14. LUCENTIS [Suspect]
     Active Substance: RANIBIZUMAB
     Dosage: 0.5 MG,RIGHT EYE
     Route: 031

REACTIONS (5)
  - Tractional retinal detachment [Unknown]
  - Macular fibrosis [Unknown]
  - Vitreous disorder [Unknown]
  - Retinal cyst [Unknown]
  - Diabetic retinal oedema [Recovered/Resolved]

NARRATIVE: CASE EVENT DATE: 201611
